FAERS Safety Report 18898729 (Version 1)
Quarter: 2021Q1

REPORT INFORMATION
  Report Type: Spontaneous
  Country: US (occurrence: US)
  Receive Date: 20210215
  Receipt Date: 20210215
  Transmission Date: 20210420
  Serious: Yes (Hospitalization)
  Sender: FDA-Public Use
  Company Number: None

PATIENT
  Age: 69 Year
  Sex: Female
  Weight: 85.5 kg

DRUGS (8)
  1. BIPAP [Concomitant]
     Active Substance: DEVICE
  2. MESLAMINE [Concomitant]
  3. D [Concomitant]
  4. URSODIOL. [Concomitant]
     Active Substance: URSODIOL
  5. CALCIIUM [Concomitant]
  6. HUMIRA [Suspect]
     Active Substance: ADALIMUMAB
     Indication: PAIN MANAGEMENT
     Dosage: ?          OTHER FREQUENCY:ONE INITIAL DOSE;?
     Route: 058
     Dates: start: 20190313, end: 20190315
  7. VENFLEXINE [Concomitant]
  8. MULTIVITAMINS [Concomitant]
     Active Substance: VITAMINS

REACTIONS (2)
  - Fall [None]
  - Cerebrovascular accident [None]

NARRATIVE: CASE EVENT DATE: 20190315
